FAERS Safety Report 4439946-7 (Version None)
Quarter: 2004Q3

REPORT INFORMATION
  Report Type: 
  Country: None (occurrence: None)
  Receive Date: 20040902
  Receipt Date: 20040826
  Transmission Date: 20050211
  Serious: Yes (Life-Threatening, Other)
  Sender: FDA-Public Use
  Company Number: US-JNJFOC-20040808565

PATIENT
  Age: 42 Year
  Sex: Male

DRUGS (5)
  1. RISPERDAL [Suspect]
     Indication: DRUG USE FOR UNKNOWN INDICATION
     Route: 049
  2. PROPOFOL [Concomitant]
  3. SERTRALINE HCL [Concomitant]
  4. CLOZAPINE [Concomitant]
  5. SEVOFLURANE [Concomitant]

REACTIONS (2)
  - CARDIAC ARREST [None]
  - SINUS BRADYCARDIA [None]
